FAERS Safety Report 14259409 (Version 1)
Quarter: 2017Q4

REPORT INFORMATION
  Report Type: Spontaneous
  Country: US (occurrence: US)
  Receive Date: 20171207
  Receipt Date: 20171207
  Transmission Date: 20180321
  Serious: No
  Sender: FDA-Public Use
  Company Number: US-GLAXOSMITHKLINE-US2017187299

PATIENT
  Age: 60 Year
  Sex: Female

DRUGS (16)
  1. TANZEUM [Suspect]
     Active Substance: ALBIGLUTIDE
     Dosage: 50 MG, WE
     Route: 058
  2. ATIVAN [Concomitant]
     Active Substance: LORAZEPAM
  3. CRANBERRY TABLET [Concomitant]
  4. SIMVASTATIN. [Concomitant]
     Active Substance: SIMVASTATIN
  5. ALBUTEROL. [Concomitant]
     Active Substance: ALBUTEROL
  6. FIBER [Concomitant]
     Active Substance: PSYLLIUM HUSK
  7. VITAMIN E [Concomitant]
     Active Substance: .ALPHA.-TOCOPHEROL
  8. GLIMEPIRIDE. [Concomitant]
     Active Substance: GLIMEPIRIDE
  9. VITAMIN D3 [Concomitant]
     Active Substance: CHOLECALCIFEROL
  10. TANZEUM [Suspect]
     Active Substance: ALBIGLUTIDE
     Indication: TYPE 2 DIABETES MELLITUS
     Dosage: 30 MG, WE
     Dates: start: 2016
  11. BIOTIN [Concomitant]
     Active Substance: BIOTIN
  12. DOCUSATE [Concomitant]
     Active Substance: DOCUSATE
  13. VITAMIN C [Concomitant]
     Active Substance: ASCORBIC ACID
  14. SYMBICORT [Concomitant]
     Active Substance: BUDESONIDE\FORMOTEROL FUMARATE DIHYDRATE
  15. FISH OIL [Concomitant]
     Active Substance: FISH OIL
  16. PAXIL [Concomitant]
     Active Substance: PAROXETINE HYDROCHLORIDE

REACTIONS (6)
  - Pain in extremity [Recovering/Resolving]
  - Ankle fracture [Recovering/Resolving]
  - Gait disturbance [Unknown]
  - Decreased appetite [Not Recovered/Not Resolved]
  - Lower limb fracture [Recovering/Resolving]
  - Fall [Unknown]

NARRATIVE: CASE EVENT DATE: 201711
